FAERS Safety Report 13962099 (Version 2)
Quarter: 2017Q4

REPORT INFORMATION
  Report Type: Spontaneous
  Country: FR (occurrence: FR)
  Receive Date: 20170912
  Receipt Date: 20171025
  Transmission Date: 20180320
  Serious: Yes (Other)
  Sender: FDA-Public Use
  Company Number: FR-MERCK KGAA-2025936

PATIENT
  Age: 54 Year
  Sex: Female
  Weight: 66 kg

DRUGS (4)
  1. NOVOTHYROX [Suspect]
     Active Substance: LEVOTHYROXINE SODIUM
     Route: 048
     Dates: start: 201705
  2. INEXIUM [Concomitant]
     Active Substance: ESOMEPRAZOLE
     Route: 048
  3. AERIUS [Concomitant]
     Active Substance: DESLORATADINE
     Route: 048
  4. NOVOTHYROX [Suspect]
     Active Substance: LEVOTHYROXINE SODIUM
     Indication: BLOOD THYROID STIMULATING HORMONE ABNORMAL
     Route: 048
     Dates: start: 201705

REACTIONS (4)
  - Dysgeusia [Not Recovered/Not Resolved]
  - Blood thyroid stimulating hormone normal [Not Recovered/Not Resolved]
  - Vertigo [Not Recovered/Not Resolved]
  - Fatigue [Not Recovered/Not Resolved]

NARRATIVE: CASE EVENT DATE: 201705
